FAERS Safety Report 20730889 (Version 3)
Quarter: 2022Q3

REPORT INFORMATION
  Report Type: Spontaneous
  Country: JP (occurrence: JP)
  Receive Date: 20220420
  Receipt Date: 20220907
  Transmission Date: 20221026
  Serious: Yes (Hospitalization, Other)
  Sender: FDA-Public Use
  Company Number: JP-ONO-2022JP008328

PATIENT
  Age: 71 Year
  Sex: Male

DRUGS (1)
  1. OPDIVO [Suspect]
     Active Substance: NIVOLUMAB
     Indication: Gastric cancer
     Route: 041
     Dates: start: 20220217, end: 20220303

REACTIONS (4)
  - Large intestinal stenosis [Recovered/Resolved]
  - Diarrhoea [Recovered/Resolved]
  - Blood corticotrophin increased [Unknown]
  - Decreased appetite [Recovered/Resolved]

NARRATIVE: CASE EVENT DATE: 20220301
